FAERS Safety Report 9879546 (Version 3)
Quarter: 2014Q1

REPORT INFORMATION
  Report Type: Spontaneous
  Country: IT (occurrence: IT)
  Receive Date: 20140206
  Receipt Date: 20140306
  Transmission Date: 20141002
  Serious: Yes (Death)
  Sender: FDA-Public Use
  Company Number: IT-CELGENEUS-083-C4047-14020214

PATIENT
  Sex: Female

DRUGS (1)
  1. CC-4047 [Suspect]
     Indication: PLASMA CELL MYELOMA
     Route: 048
     Dates: start: 20140122, end: 20140123

REACTIONS (1)
  - Plasma cell myeloma [Fatal]
